FAERS Safety Report 15099166 (Version 1)
Quarter: 2018Q3

REPORT INFORMATION
  Report Type: Spontaneous
  Country: US (occurrence: US)
  Receive Date: 20180702
  Receipt Date: 20180702
  Transmission Date: 20181010
  Serious: No
  Sender: FDA-Public Use
  Company Number: US-TEVA-2018-US-916376

PATIENT
  Sex: Female

DRUGS (3)
  1. SYNTHROID [Concomitant]
     Active Substance: LEVOTHYROXINE SODIUM
     Dosage: 25 MILLIGRAM DAILY;
  2. MICONAZOLE. [Suspect]
     Active Substance: MICONAZOLE
     Indication: VULVOVAGINAL DISCOMFORT
     Dates: start: 20180618
  3. MICONAZOLE. [Suspect]
     Active Substance: MICONAZOLE
     Indication: VULVOVAGINAL PAIN

REACTIONS (1)
  - Drug effective for unapproved indication [Unknown]

NARRATIVE: CASE EVENT DATE: 20180618
